FAERS Safety Report 10385055 (Version 2)
Quarter: 2015Q2

REPORT INFORMATION
  Report Type: Spontaneous
  Country: JP (occurrence: JP)
  Receive Date: 20140814
  Receipt Date: 20150507
  Transmission Date: 20150821
  Serious: Yes (Other)
  Sender: FDA-Public Use
  Company Number: PHHY2013JP160947

PATIENT
  Age: 79 Year
  Sex: Male

DRUGS (1)
  1. IMATINIB [Suspect]
     Active Substance: IMATINIB
     Indication: CHRONIC MYELOID LEUKAEMIA
     Dosage: 100 MG/12KG/PER DAY

REACTIONS (2)
  - Second primary malignancy [Unknown]
  - Lung neoplasm malignant [Unknown]
